FAERS Safety Report 17251462 (Version 1)
Quarter: 2020Q1

REPORT INFORMATION
  Report Type: Spontaneous
  Country: US (occurrence: US)
  Receive Date: 20200109
  Receipt Date: 20200109
  Transmission Date: 20200409
  Serious: Yes (Other)
  Sender: FDA-Public Use
  Company Number: US-PFIZER INC-2019267854

PATIENT
  Age: 13 Year
  Sex: Male
  Weight: 65.76 kg

DRUGS (2)
  1. GENOTROPIN MQ [Suspect]
     Active Substance: SOMATROPIN
     Dosage: 2.2 MG, DAILY (1.0MG AND 1.2MG)
  2. GENOTROPIN MQ [Suspect]
     Active Substance: SOMATROPIN
     Indication: GROWTH HORMONE DEFICIENCY
     Dosage: 2.2 MG, 1X/DAY (NIGHTLY)
     Dates: start: 200610

REACTIONS (3)
  - Autism spectrum disorder [Unknown]
  - Product administered at inappropriate site [Unknown]
  - Condition aggravated [Unknown]
